FAERS Safety Report 11611513 (Version 4)
Quarter: 2016Q1

REPORT INFORMATION
  Report Type: Spontaneous
  Country: US (occurrence: US)
  Receive Date: 20151008
  Receipt Date: 20160225
  Transmission Date: 20160525
  Serious: No
  Sender: FDA-Public Use
  Company Number: US-PFIZER INC-2015256939

PATIENT
  Age: 62 Year
  Sex: Female

DRUGS (10)
  1. DOXYCYCLINE HYCLATE. [Concomitant]
     Active Substance: DOXYCYCLINE HYCLATE
     Dosage: 100 MG, UNK
  2. ZOFRAN [Concomitant]
     Active Substance: ONDANSETRON HYDROCHLORIDE
     Dosage: UNK
  3. RESTASIS [Concomitant]
     Active Substance: CYCLOSPORINE
     Dosage: 0.05 %, UNK
  4. CALCIUM 600 + D3 PLUS MINERALS [Concomitant]
     Dosage: UNK (CALCIUM 600 + D(3) 600 MG (1500 MG)-400 UNIT)
  5. LETROZOLE. [Concomitant]
     Active Substance: LETROZOLE
     Dosage: 2.5 MG, CYCLIC (DAY 1-21)
     Route: 048
     Dates: start: 20100811
  6. XGEVA [Concomitant]
     Active Substance: DENOSUMAB
     Dosage: 120 MG, MONTHLY (EVERY 4 WEEKS)
     Route: 058
  7. IBRANCE [Suspect]
     Active Substance: PALBOCICLIB
     Indication: BREAST CANCER METASTATIC
     Dosage: 125 MG, CYCLIC (DAY 1-21)
     Route: 048
  8. FEMARA [Concomitant]
     Active Substance: LETROZOLE
     Dosage: 2.5 MG, DAILY
     Route: 048
  9. IBUPROFEN. [Concomitant]
     Active Substance: IBUPROFEN
     Dosage: 200 MG, UNK
  10. AMLODIPINE/BENAZEPRIL [Concomitant]
     Active Substance: AMLODIPINE BESYLATE\BENAZEPRIL HYDROCHLORIDE
     Dosage: UNK (AMLODIPINE 5 MG-BENAZEPRIL 10 MG)

REACTIONS (8)
  - Blood count abnormal [Unknown]
  - Pain in extremity [Unknown]
  - Fatigue [Unknown]
  - Breast cancer metastatic [Unknown]
  - Pain [Unknown]
  - Dry eye [Unknown]
  - Disease progression [Unknown]
  - Swelling [Unknown]
